FAERS Safety Report 4755051-4 (Version None)
Quarter: 2005Q3

REPORT INFORMATION
  Report Type: 
  Country: None (occurrence: None)
  Receive Date: 20050825
  Receipt Date: 20050812
  Transmission Date: 20060218
  Serious: Yes (Hospitalization, Other)
  Sender: FDA-Public Use
  Company Number: 2005112907

PATIENT
  Sex: Male
  Weight: 77.1115 kg

DRUGS (6)
  1. LIPITOR [Suspect]
     Indication: BLOOD CHOLESTEROL INCREASED
     Dosage: 10 MG (10 MG, 1 IN 1 D), ORAL
     Route: 048
  2. GLUCOSAMINE (GLUCOSAMINE) [Concomitant]
  3. ACETYLSALICYLIC ACID SRT [Concomitant]
  4. NOVO-METOPROL (METOPROLOL TARTRATE) [Concomitant]
  5. RABEPRAZOLE SODIUM [Concomitant]
  6. COVERSYL (PERINDOPRIL) [Concomitant]

REACTIONS (4)
  - INTESTINAL OBSTRUCTION [None]
  - MYALGIA [None]
  - MYELODYSPLASTIC SYNDROME [None]
  - WEIGHT DECREASED [None]
